FAERS Safety Report 5694569-7 (Version None)
Quarter: 2008Q2

REPORT INFORMATION
  Report Type: 
  Country: None (occurrence: None)
  Receive Date: 20080404
  Receipt Date: 20080331
  Transmission Date: 20081010
  Serious: Yes (Life-Threatening)
  Sender: FDA-Public Use
  Company Number: JP-AVENTIS-200810701JP

PATIENT
  Age: 68 Year
  Sex: Male
  Weight: 57 kg

DRUGS (6)
  1. AMARYL [Suspect]
     Indication: DIABETES MELLITUS
     Route: 048
     Dates: start: 20080228, end: 20080301
  2. NU-LOTAN [Suspect]
     Indication: HYPERTENSION
     Route: 048
     Dates: start: 20080131
  3. NU-LOTAN [Suspect]
     Indication: DIABETIC NEPHROPATHY
     Route: 048
     Dates: start: 20080131
  4. CRAVIT [Suspect]
     Route: 048
     Dates: start: 20080214
  5. GASMOTIN [Concomitant]
     Route: 048
     Dates: start: 20080218, end: 20080312
  6. NOVORAPID [Concomitant]
     Indication: DIABETES MELLITUS
     Dates: end: 20080227

REACTIONS (2)
  - DRUG INTERACTION [None]
  - HYPOGLYCAEMIA [None]
